FAERS Safety Report 5377171-6 (Version None)
Quarter: 2007Q3

REPORT INFORMATION
  Report Type: 
  Country: None (occurrence: None)
  Receive Date: 20070703
  Receipt Date: 20070622
  Transmission Date: 20080115
  Serious: Yes (Hospitalization)
  Sender: FDA-Public Use
  Company Number: US-ELI_LILLY_AND_COMPANY-US200706005312

PATIENT
  Sex: Male

DRUGS (4)
  1. HUMULIN N [Suspect]
     Indication: DIABETES MELLITUS
  2. ILETIN [Suspect]
     Indication: DIABETES MELLITUS
  3. HUMULIN R [Suspect]
     Indication: DIABETES MELLITUS
  4. HUMULIN 70/30 [Suspect]
     Indication: DIABETES MELLITUS

REACTIONS (10)
  - BLOOD GLUCOSE FLUCTUATION [None]
  - BLOOD GLUCOSE INCREASED [None]
  - BONE PAIN [None]
  - DIABETIC COMA [None]
  - DRY MOUTH [None]
  - FATIGUE [None]
  - IRRITABILITY [None]
  - MALAISE [None]
  - THIRST [None]
  - VISUAL DISTURBANCE [None]
